FAERS Safety Report 13797021 (Version 2)
Quarter: 2018Q4

REPORT INFORMATION
  Report Type: Spontaneous
  Country: US (occurrence: US)
  Receive Date: 20170727
  Receipt Date: 20181108
  Transmission Date: 20190204
  Serious: Yes (Other)
  Sender: FDA-Public Use
  Company Number: US-BRISTOL-MYERS SQUIBB COMPANY-BMS-2017-066604

PATIENT
  Age: 61 Year
  Sex: Male

DRUGS (1)
  1. NIVOLUMAB [Suspect]
     Active Substance: NIVOLUMAB
     Indication: PLEURAL EFFUSION
     Dosage: 2 MG/KG, UNK
     Route: 042
     Dates: start: 20150811

REACTIONS (2)
  - Prescribed underdose [Unknown]
  - Pulmonary sarcoidosis [Unknown]
